FAERS Safety Report 4549949-X (Version None)
Quarter: 2005Q1

REPORT INFORMATION
  Report Type: 
  Country: None (occurrence: None)
  Receive Date: 20050112
  Receipt Date: 20050110
  Transmission Date: 20050727
  Serious: Yes (Hospitalization)
  Sender: FDA-Public Use
  Company Number: FR-RB-1216-2005

PATIENT
  Age: 29 Year
  Sex: Male

DRUGS (1)
  1. BUPRENORPHINE HCL [Suspect]
     Indication: POLYSUBSTANCE DEPENDENCE
     Route: 042
     Dates: start: 20040101

REACTIONS (4)
  - ENDOCARDITIS [None]
  - INTENTIONAL MISUSE [None]
  - MEDICATION ERROR [None]
  - STAPHYLOCOCCAL INFECTION [None]
